FAERS Safety Report 11473571 (Version 3)
Quarter: 2016Q3

REPORT INFORMATION
  Report Type: Report from Study
  Country: BE (occurrence: BE)
  Receive Date: 20150908
  Receipt Date: 20160929
  Transmission Date: 20161109
  Serious: Yes (Hospitalization, Disabling, Other)
  Sender: FDA-Public Use
  Company Number: BE-JAZZ-JPI-P-022772

PATIENT
  Age: 36 Year
  Sex: Female
  Weight: 60 kg

DRUGS (7)
  1. XYREM [Suspect]
     Active Substance: SODIUM OXYBATE
     Indication: NARCOLEPSY
     Dosage: 2.65 G, BID
     Route: 048
     Dates: start: 20100303
  2. MODAFINIL. [Concomitant]
     Active Substance: MODAFINIL
     Indication: NARCOLEPSY
     Dosage: 600 MG, QD
     Route: 048
     Dates: start: 20101129
  3. FLUOXETINE [Suspect]
     Active Substance: FLUOXETINE HYDROCHLORIDE
     Indication: CATAPLEXY
     Dosage: 20 MG, QD
     Route: 048
     Dates: start: 2002
  4. XYREM [Suspect]
     Active Substance: SODIUM OXYBATE
     Indication: CATAPLEXY
     Dosage: 2.5 G, BID
     Route: 048
     Dates: end: 20101115
  5. XYREM [Suspect]
     Active Substance: SODIUM OXYBATE
     Dosage: 10 OR 12 G
     Route: 048
  6. MERCILON [Concomitant]
     Active Substance: DESOGESTREL\ETHINYL ESTRADIOL
     Indication: PRODUCT USED FOR UNKNOWN INDICATION
     Dosage: UNK
     Dates: start: 2000
  7. XYREM [Suspect]
     Active Substance: SODIUM OXYBATE
     Dosage: 12 G, QD
     Route: 048
     Dates: start: 201101

REACTIONS (6)
  - Hallucination [Recovered/Resolved]
  - Somnambulism [Not Recovered/Not Resolved]
  - Intentional overdose [Unknown]
  - Confusional state [Recovered/Resolved]
  - Suicide attempt [Recovered/Resolved]
  - Nightmare [Not Recovered/Not Resolved]

NARRATIVE: CASE EVENT DATE: 20100901
